FAERS Safety Report 19481703 (Version 2)
Quarter: 2021Q3

REPORT INFORMATION
  Report Type: Spontaneous
  Country: FR (occurrence: FR)
  Receive Date: 20210701
  Receipt Date: 20210702
  Transmission Date: 20211014
  Serious: Yes (Death, Hospitalization, Other)
  Sender: FDA-Public Use
  Company Number: NVSC2021FR147463

PATIENT
  Age: 89 Year
  Sex: Male
  Weight: 82 kg

DRUGS (18)
  1. FUROSEMIDE. [Suspect]
     Active Substance: FUROSEMIDE
     Indication: CARDIAC VALVE DISEASE
     Dosage: UNK
     Route: 065
  2. AZITHROMYCIN ANHYDROUS. [Suspect]
     Active Substance: AZITHROMYCIN ANHYDROUS
     Indication: COVID-19
     Dosage: UNK
     Route: 065
  3. AZITHROMYCIN ANHYDROUS. [Interacting]
     Active Substance: AZITHROMYCIN ANHYDROUS
     Indication: ANTIBIOTIC THERAPY
  4. CEFOTAXIME [Concomitant]
     Active Substance: CEFOTAXIME SODIUM
     Indication: ANTIBIOTIC THERAPY
  5. ENOXAPARIN [Concomitant]
     Active Substance: ENOXAPARIN
     Dosage: 200 IU/KG, QD (100 IU/KG, BID)
     Route: 058
  6. AMOXICILLIN. [Suspect]
     Active Substance: AMOXICILLIN
     Indication: ANTIBIOTIC THERAPY
     Dosage: UNK
     Route: 065
  7. RAMIPRIL. [Suspect]
     Active Substance: RAMIPRIL
     Indication: HYPERTENSION
     Dosage: UNK
     Route: 065
  8. RAMIPRIL. [Suspect]
     Active Substance: RAMIPRIL
     Indication: CARDIAC VALVE DISEASE
  9. BISOPROLOL [Suspect]
     Active Substance: BISOPROLOL
     Indication: ATRIAL FIBRILLATION
  10. WARFARIN [Interacting]
     Active Substance: WARFARIN
     Indication: ATRIAL FIBRILLATION
  11. SPIRAMYCIN [Suspect]
     Active Substance: SPIRAMYCIN
     Indication: ANTIBIOTIC THERAPY
     Dosage: UNK
     Route: 065
  12. DEXAMETHASONE. [Concomitant]
     Active Substance: DEXAMETHASONE
     Indication: COVID-19 PNEUMONIA
     Dosage: 6 MG, QD
     Route: 065
  13. TINZAPARIN [Concomitant]
     Active Substance: TINZAPARIN
     Indication: COAGULOPATHY
     Dosage: 175 IU/KG, QD
     Route: 065
  14. FUROSEMIDE. [Suspect]
     Active Substance: FUROSEMIDE
     Indication: HYPERTENSION
  15. BISOPROLOL [Suspect]
     Active Substance: BISOPROLOL
     Indication: CARDIAC VALVE DISEASE
     Dosage: UNK
     Route: 065
  16. WARFARIN [Interacting]
     Active Substance: WARFARIN
     Indication: CARDIAC VALVE DISEASE
     Dosage: 5 MILLIGRAM, QD
     Route: 065
  17. CEFOTAXIME [Concomitant]
     Active Substance: CEFOTAXIME SODIUM
     Indication: COVID-19
     Dosage: UNK
     Route: 065
  18. ENOXAPARIN [Concomitant]
     Active Substance: ENOXAPARIN
     Indication: INTERNATIONAL NORMALISED RATIO FLUCTUATION
     Dosage: 8000 IU, QD
     Route: 065

REACTIONS (13)
  - Heart sounds abnormal [Unknown]
  - Haemoglobin decreased [Unknown]
  - Septic shock [Fatal]
  - Pulmonary embolism [Recovering/Resolving]
  - Labelled drug-drug interaction medication error [Recovering/Resolving]
  - Pulmonary congestion [Unknown]
  - Fibrin D dimer increased [Unknown]
  - Condition aggravated [Fatal]
  - Pulmonary oedema [Unknown]
  - Hypoxia [Unknown]
  - Rales [Unknown]
  - Pneumonia [Fatal]
  - Off label use [Unknown]
